FAERS Safety Report 10497481 (Version 1)
Quarter: 2014Q4

REPORT INFORMATION
  Report Type: Spontaneous
  Country: IT (occurrence: None)
  Receive Date: 20141002
  Receipt Date: 20141002
  Transmission Date: 20150528
  Serious: Yes (Death)
  Sender: FDA-Public Use
  Company Number: INT_00434_2014

PATIENT
  Sex: Female

DRUGS (2)
  1. PACLITAXEL (PACLITAXEL) (HQ SPECIALTY) [Suspect]
     Active Substance: PACLITAXEL
     Indication: OVARIAN CANCER
     Dosage: ONCE EVERY 21 DAYS GIVE OVER 3 HOURS FOR 6 CYCLES
     Route: 042
  2. CARBOPLATIN (CARBOPLATIN) (HQ SPECIALTY) [Suspect]
     Active Substance: CARBOPLATIN
     Indication: OVARIAN CANCER
     Dosage: PER MIN, GIVER OVER 30 MINUTES ONCE EVERY 3 WEEKS, FOR 6 CYCLES
     Route: 042

REACTIONS (4)
  - Disease progression [None]
  - Intestinal perforation [None]
  - Febrile neutropenia [None]
  - Toxicity to various agents [None]
